FAERS Safety Report 24970314 (Version 1)
Quarter: 2025Q1

REPORT INFORMATION
  Report Type: Report from Study
  Country: CA (occurrence: CA)
  Receive Date: 20250214
  Receipt Date: 20250214
  Transmission Date: 20250408
  Serious: Yes (Hospitalization, Other)
  Sender: GILEAD
  Company Number: CA-GLAXOSMITHKLINE-CA2024AMR016981

PATIENT
  Age: 39 Year
  Sex: Male

DRUGS (1)
  1. AMBRISENTAN [Suspect]
     Active Substance: AMBRISENTAN
     Indication: Pulmonary arterial hypertension
     Dosage: 10 MG, QDOR
     Route: 048
     Dates: start: 20210422

REACTIONS (6)
  - Transplant [Unknown]
  - Nasopharyngitis [Recovering/Resolving]
  - Dermatitis contact [Recovering/Resolving]
  - Pruritus [Unknown]
  - Blister [Recovering/Resolving]
  - Secretion discharge [Recovering/Resolving]

NARRATIVE: CASE EVENT DATE: 20240101
